FAERS Safety Report 4445390-9 (Version None)
Quarter: 2004Q3

REPORT INFORMATION
  Report Type: 
  Country: None (occurrence: None)
  Receive Date: 20040729
  Receipt Date: 20040308
  Transmission Date: 20050211
  Serious: Yes (Death)
  Sender: FDA-Public Use
  Company Number: 2004AC00012

PATIENT
  Age: 41 Year
  Sex: Female

DRUGS (7)
  1. AMITRIPTYLINE HCL [Suspect]
  2. DESIPRAMINE HCL [Suspect]
  3. DIPHENHYDRAMINE HCL [Suspect]
  4. NORTRIPTYLINE HCL [Suspect]
  5. PSEUDOEPHEDRINE HCL [Suspect]
  6. SALICYLATE [Suspect]
  7. ETHANOL [Suspect]

REACTIONS (2)
  - COMPLETED SUICIDE [None]
  - INTENTIONAL OVERDOSE [None]
